FAERS Safety Report 18175609 (Version 1)
Quarter: 2020Q3

REPORT INFORMATION
  Report Type: Spontaneous
  Country: CN (occurrence: CN)
  Receive Date: 20200820
  Receipt Date: 20200820
  Transmission Date: 20201103
  Serious: Yes (Hospitalization, Other)
  Sender: FDA-Public Use
  Company Number: CN-PFIZER INC-2020318008

PATIENT
  Age: 48 Year
  Sex: Male

DRUGS (3)
  1. PREDNISOLONE. [Concomitant]
     Active Substance: PREDNISOLONE
     Dosage: GRADUALLY REDUCED
  2. METHOTREXATE SODIUM. [Suspect]
     Active Substance: METHOTREXATE SODIUM
     Indication: PEMPHIGOID
     Dosage: 10 MG, WEEKLY
  3. PREDNISOLONE. [Concomitant]
     Active Substance: PREDNISOLONE
     Indication: PEMPHIGOID
     Dosage: 60 MG, DAILY
     Route: 048

REACTIONS (6)
  - Pneumonia [Recovering/Resolving]
  - Product use in unapproved indication [Unknown]
  - Myelosuppression [Recovering/Resolving]
  - Off label use [Unknown]
  - Azotaemia [Recovering/Resolving]
  - Pulmonary toxicity [Recovering/Resolving]
